FAERS Safety Report 9207542 (Version 1)
Quarter: 2013Q2

REPORT INFORMATION
  Report Type: Spontaneous
  Country: US (occurrence: US)
  Receive Date: 20130403
  Receipt Date: 20130403
  Transmission Date: 20140414
  Serious: No
  Sender: FDA-Public Use
  Company Number: US-TEVA-395919USA

PATIENT
  Age: 61 Year
  Sex: Female
  Weight: 77.18 kg

DRUGS (2)
  1. QVAR [Suspect]
  2. PROAIR HFA [Concomitant]

REACTIONS (5)
  - Nasal discharge discolouration [Unknown]
  - Nasal congestion [Unknown]
  - Malaise [Not Recovered/Not Resolved]
  - Nasopharyngitis [Not Recovered/Not Resolved]
  - Sinusitis [Unknown]
